FAERS Safety Report 9069186 (Version 2)
Quarter: 2013Q1

REPORT INFORMATION
  Report Type: Spontaneous
  Country: FR (occurrence: FR)
  Receive Date: 20130215
  Receipt Date: 20130221
  Transmission Date: 20140127
  Serious: Yes (Other)
  Sender: FDA-Public Use
  Company Number: FR-009507513-1302FRA002911

PATIENT
  Age: 47 None
  Sex: Male

DRUGS (2)
  1. CELESTENE [Suspect]
     Indication: NEURALGIA
     Dosage: 2 MG, BID
     Route: 048
     Dates: start: 20121108, end: 20121113
  2. LYRICA [Suspect]
     Indication: NEURALGIA
     Dosage: 75 MG, QD
     Route: 048
     Dates: start: 20121108, end: 20121113

REACTIONS (2)
  - Abdominal pain [Not Recovered/Not Resolved]
  - Oedematous pancreatitis [Not Recovered/Not Resolved]
